FAERS Safety Report 8062771-5 (Version None)
Quarter: 2012Q1

REPORT INFORMATION
  Report Type: 
  Country: None (occurrence: None)
  Receive Date: 20120123
  Receipt Date: 20120118
  Transmission Date: 20120608
  Serious: No
  Sender: FDA-Public Use
  Company Number: US-TEVA-318091USA

PATIENT
  Age: 53 Year
  Sex: Female

DRUGS (3)
  1. INTERFERON BETA NOS [Suspect]
  2. INTERFERON [Suspect]
  3. COPAXONE [Suspect]
     Indication: MULTIPLE SCLEROSIS
     Route: 058

REACTIONS (4)
  - FALL [None]
  - HIP FRACTURE [None]
  - GAIT DISTURBANCE [None]
  - BALANCE DISORDER [None]
